FAERS Safety Report 6400011-0 (Version None)
Quarter: 2009Q4

REPORT INFORMATION
  Report Type: 
  Country: None (occurrence: None)
  Receive Date: 20091008
  Receipt Date: 20091008
  Transmission Date: 20100525
  Serious: Yes (Life-Threatening, Hospitalization)
  Sender: FDA-Public Use
  Company Number: None

PATIENT
  Age: 30 Year
  Sex: Female
  Weight: 92.9874 kg

DRUGS (1)
  1. CIPRO [Suspect]
     Indication: URINARY TRACT INFECTION
     Dosage: 750 MG 2 TIMES A DAY
     Dates: start: 20090910, end: 20090911

REACTIONS (7)
  - DEHYDRATION [None]
  - DRUG HYPERSENSITIVITY [None]
  - LOSS OF EMPLOYMENT [None]
  - PRODUCT LABEL ISSUE [None]
  - RENAL FAILURE [None]
  - RENAL INJURY [None]
  - VOMITING [None]
